FAERS Safety Report 8487960-7 (Version None)
Quarter: 2012Q3

REPORT INFORMATION
  Report Type: 
  Country: None (occurrence: None)
  Receive Date: 20120705
  Receipt Date: 20120626
  Transmission Date: 20120928
  Serious: Yes (Hospitalization)
  Sender: FDA-Public Use
  Company Number: US-BAYER-2012-061859

PATIENT
  Age: 39 Year
  Sex: Female
  Weight: 108.39 kg

DRUGS (8)
  1. DROSPIRENONE AND ETHINYL ESTRADIOL [Suspect]
     Indication: MENORRHAGIA
  2. DROSPIRENONE AND ETHINYL ESTRADIOL [Suspect]
     Indication: CONTRACEPTION
     Dosage: UNK
     Dates: start: 20081021, end: 20090119
  3. IBUPROFEN [Concomitant]
     Dosage: UNK UNK, PRN
  4. IMITREX [Concomitant]
     Dosage: UNK UNK, PRN
  5. MULTI-VITAMIN [Concomitant]
  6. ACETAMINOPHEN [Concomitant]
  7. LISINOPRIL [Concomitant]
  8. DOCUSATE [Concomitant]

REACTIONS (6)
  - LUNG INFILTRATION [None]
  - PAIN [None]
  - INJURY [None]
  - COUGH [None]
  - DYSPNOEA [None]
  - PULMONARY EMBOLISM [None]
